FAERS Safety Report 21047350 (Version 1)
Quarter: 2022Q3

REPORT INFORMATION
  Report Type: Spontaneous
  Country: US (occurrence: US)
  Receive Date: 20220706
  Receipt Date: 20220706
  Transmission Date: 20221027
  Serious: Yes (Hospitalization)
  Sender: FDA-Public Use
  Company Number: US-Fresenius Medical Care Renal Therapies Group-FMC-2206-000945

PATIENT
  Age: 82 Year
  Sex: Female

DRUGS (3)
  1. DELFLEX WITH DEXTROSE 1.5% LOW MAGNESIUM LOW CALCIUM [Suspect]
     Active Substance: CALCIUM CHLORIDE\DEXTROSE\MAGNESIUM CHLORIDE\SODIUM CHLORIDE\SODIUM LACTATE
     Indication: End stage renal disease
     Dosage: EXCHANGES = 3, FILL VOLUME = 1800 ML, DWELL TIME = 2.25 HOURS, LAST FILL = N/A, DAYTIME DWELL = N/A.
     Route: 033
  2. DELFLEX WITH DEXTROSE 2.5% LOW MAGNESIUM LOW CALCIUM [Suspect]
     Active Substance: CALCIUM CHLORIDE\DEXTROSE\MAGNESIUM CHLORIDE\SODIUM CHLORIDE\SODIUM LACTATE
     Indication: End stage renal disease
     Dosage: EXCHANGES = 3, FILL VOLUME = 1800 ML, DWELL TIME = 2.25 HOURS, LAST FILL = N/A, DAYTIME DWELL = N/A.
     Route: 033
  3. DELFLEX WITH DEXTROSE 4.25% LOW MAGNESIUM LOW CALCIUM [Suspect]
     Active Substance: CALCIUM CHLORIDE\DEXTROSE\MAGNESIUM CHLORIDE\SODIUM CHLORIDE\SODIUM LACTATE
     Indication: End stage renal disease
     Dosage: EXCHANGES = 3, FILL VOLUME = 1800 ML, DWELL TIME = 2.25 HOURS, LAST FILL = N/A, DAYTIME DWELL = N/A.
     Route: 033

REACTIONS (2)
  - Cardiac failure congestive [Recovering/Resolving]
  - Bloody peritoneal effluent [Unknown]

NARRATIVE: CASE EVENT DATE: 20220624
